FAERS Safety Report 8791581 (Version 1)
Quarter: 2012Q4

REPORT INFORMATION
  Report Type: Spontaneous
  Country: US (occurrence: None)
  Receive Date: 20120913
  Receipt Date: 20120913
  Transmission Date: 20130627
  Serious: Yes (Hospitalization)
  Sender: FDA-Public Use
  Company Number: DKLU1084328

PATIENT
  Age: 5 Month
  Sex: Female

DRUGS (12)
  1. SABRIL [Suspect]
     Indication: EPILEPSY
     Dosage: 625 mg milligram(s), AM
     Dates: start: 20120811
  2. SABRIL [Suspect]
     Indication: INFANTILE SPASMS
     Dosage: 625 mg milligram(s), AM
     Dates: start: 20120811
  3. SABRIL [Suspect]
     Dosage: 625 mg milligram(s), AM
     Dates: start: 20120811
  4. SABRIL [Suspect]
     Indication: EPILEPSY
     Dosage: 625 mg milligram(s), PM
     Dates: start: 20120811
  5. SABRIL [Suspect]
     Indication: INFANTILE SPASMS
     Dosage: 625 mg milligram(s), PM
     Dates: start: 20120811
  6. SABRIL [Suspect]
     Dosage: 625 mg milligram(s), PM
     Dates: start: 20120811
  7. SABRIL [Suspect]
     Indication: EPILEPSY
     Dosage: 500 mg milligram(s), AM
     Dates: start: 20120813
  8. SABRIL [Suspect]
     Indication: INFANTILE SPASMS
     Dosage: 500 mg milligram(s), AM
     Dates: start: 20120813
  9. SABRIL [Suspect]
     Dosage: 500 mg milligram(s), AM
     Dates: start: 20120813
  10. SABRIL [Suspect]
     Indication: EPILEPSY
     Dosage: 750 mg milligram(s), PM
     Dates: start: 20120813
  11. SABRIL [Suspect]
     Indication: INFANTILE SPASMS
     Dosage: 750 mg milligram(s), PM
     Dates: start: 20120813
  12. SABRIL [Suspect]
     Dosage: 750 mg milligram(s), PM
     Dates: start: 20120813

REACTIONS (3)
  - Pneumonia [None]
  - Somnolence [None]
  - Aphagia [None]
